FAERS Safety Report 8481180 (Version 4)
Quarter: 2013Q1

REPORT INFORMATION
  Report Type: Spontaneous
  Country: DE (occurrence: DE)
  Receive Date: 20120328
  Receipt Date: 20130131
  Transmission Date: 20140127
  Serious: Yes (Hospitalization)
  Sender: FDA-Public Use
  Company Number: DE-AMGEN-DEUSP2012019240

PATIENT
  Sex: Male

DRUGS (15)
  1. PEGFILGRASTIM [Suspect]
     Indication: B-CELL LYMPHOMA
     Dosage: 6 MG, Q2WK
     Route: 058
     Dates: start: 20120217
  2. RITUXIMAB [Concomitant]
     Indication: B-CELL LYMPHOMA
     Dosage: 769 MG, Q2WK
     Route: 042
     Dates: start: 20120213
  3. CYCLOPHOSPHAMIDE [Concomitant]
     Indication: B-CELL LYMPHOMA
     Dosage: 1537.5 MG, Q2WK
     Route: 042
     Dates: start: 20120214
  4. DOXORUBICIN [Concomitant]
     Indication: B-CELL LYMPHOMA
     Dosage: 102.5 MG, Q2WK
     Route: 042
     Dates: start: 20120214
  5. VINCRISTINE [Concomitant]
     Indication: B-CELL LYMPHOMA
     Dosage: 2 MG, Q2WK
     Route: 042
     Dates: start: 20120214
  6. PREDNISOLONE [Concomitant]
     Indication: B-CELL LYMPHOMA
     Dosage: 100 MG, FOR 5 DAYS
     Route: 048
     Dates: start: 20120214, end: 20120218
  7. ATACAND [Concomitant]
     Indication: HYPERTENSION
     Dosage: 16 MG, BID
     Route: 048
     Dates: start: 20120207
  8. METOPROLOL [Concomitant]
     Indication: HYPERTENSION
     Dosage: 47.5 MG, UNK
     Route: 048
     Dates: start: 20120207
  9. HYDROCHLOROTHIAZIDE [Concomitant]
     Indication: HYPERTENSION
     Dosage: 12.5 MG, QD
     Route: 048
     Dates: start: 20120207
  10. CARBAMAZEPINE [Concomitant]
     Indication: NEURALGIA
     Dosage: 400 MG, QD
     Route: 048
     Dates: start: 20120207
  11. STANGYL                            /00051803/ [Concomitant]
     Indication: MENTAL DISORDER
     Dosage: 25 MG, QD
     Route: 048
     Dates: start: 20120207
  12. OXYBUTYNIN                         /00538902/ [Concomitant]
     Indication: DYSURIA
     Dosage: 2.5 MG, BID
     Route: 048
     Dates: start: 20120207
  13. AMLODIPINE [Concomitant]
     Indication: HYPERTENSION
     Dosage: 15 MG, QD
     Dates: start: 20120207
  14. LYRICA [Concomitant]
     Indication: PAIN
     Dosage: 300 MG, QD
     Dates: start: 20120207
  15. POTASSIUM [Concomitant]
     Indication: HYPOKALAEMIA
     Dosage: UNK UNK, QD
     Route: 048
     Dates: start: 20120207

REACTIONS (1)
  - Thrombophlebitis superficial [Recovered/Resolved]
